FAERS Safety Report 8803911 (Version 3)
Quarter: 2012Q4

REPORT INFORMATION
  Report Type: 
  Country: CA (occurrence: CA)
  Receive Date: 20120924
  Receipt Date: 20121129
  Transmission Date: 20130627
  Serious: Yes (Hospitalization, Other)
  Sender: FDA-Public Use
  Company Number: PHHY2012CA082551

PATIENT
  Age: 21 Year
  Sex: Female

DRUGS (2)
  1. GILENYA [Suspect]
     Indication: RELAPSING-REMITTING MULTIPLE SCLEROSIS
     Dosage: 0.5 mg, daily
     Route: 048
     Dates: start: 20111003
  2. DIAZEPAM [Concomitant]
     Indication: INSOMNIA
     Dosage: 5 mg, PRN

REACTIONS (5)
  - Suicide attempt [Recovering/Resolving]
  - Dysthymic disorder [Unknown]
  - Expired drug administered [Unknown]
  - Intentional overdose [Unknown]
  - Drug ineffective [Unknown]
